FAERS Safety Report 7437291-9 (Version None)
Quarter: 2011Q2

REPORT INFORMATION
  Report Type: 
  Country: None (occurrence: None)
  Receive Date: 20110420
  Receipt Date: 20110412
  Transmission Date: 20111010
  Serious: Yes (Other)
  Sender: FDA-Public Use
  Company Number: 20109274

PATIENT
  Sex: Male

DRUGS (4)
  1. LIORESAL [Suspect]
     Indication: MUSCLE SPASTICITY
     Dosage: MCG, DAILY, INTRATHECAL
     Route: 037
  2. MORPHINE [Concomitant]
  3. DROPERIDOL [Concomitant]
  4. BUPIVACAINE HCL [Concomitant]

REACTIONS (9)
  - DEVICE MALFUNCTION [None]
  - DIARRHOEA [None]
  - DRUG WITHDRAWAL SYNDROME [None]
  - ABASIA [None]
  - ARTHRITIS [None]
  - FATIGUE [None]
  - MUSCULAR WEAKNESS [None]
  - TREMOR [None]
  - GASTROINTESTINAL DISORDER [None]
